FAERS Safety Report 13325888 (Version 1)
Quarter: 2017Q1

REPORT INFORMATION
  Report Type: Spontaneous
  Country: AR (occurrence: AR)
  Receive Date: 20170310
  Receipt Date: 20170310
  Transmission Date: 20170428
  Serious: Yes (Hospitalization)
  Sender: FDA-Public Use
  Company Number: AR-BIOGEN-2017BI00368878

PATIENT
  Age: 42 Year
  Sex: Male

DRUGS (2)
  1. TYSABRI [Suspect]
     Active Substance: NATALIZUMAB
     Indication: MULTIPLE SCLEROSIS
     Dosage: INFUSED OVER 1 HOUR
     Route: 042
     Dates: start: 201401
  2. LAMOTRIGINE. [Concomitant]
     Active Substance: LAMOTRIGINE
     Indication: PRODUCT USED FOR UNKNOWN INDICATION
     Route: 065

REACTIONS (7)
  - Pulmonary embolism [Recovered/Resolved with Sequelae]
  - Anaemia [Unknown]
  - Hypoxia [Unknown]
  - Dyspnoea [Unknown]
  - Multiple sclerosis [Unknown]
  - Deep vein thrombosis [Recovered/Resolved with Sequelae]
  - Pulmonary hypertension [Unknown]

NARRATIVE: CASE EVENT DATE: 201702
